FAERS Safety Report 5966193-X (Version None)
Quarter: 2008Q4

REPORT INFORMATION
  Report Type: 
  Country: None (occurrence: None)
  Receive Date: 20081125
  Receipt Date: 20081124
  Transmission Date: 20090506
  Serious: Yes (Other)
  Sender: FDA-Public Use
  Company Number: US-BRISTOL-MYERS SQUIBB COMPANY-14299663

PATIENT
  Age: 75 Year
  Sex: Female

DRUGS (9)
  1. LISINOPRIL [Suspect]
  2. GLUCOPHAGE [Suspect]
  3. REVATIO [Suspect]
     Indication: PULMONARY ARTERIAL HYPERTENSION
  4. ASPIRIN [Suspect]
  5. ALLOPURINOL [Suspect]
  6. GLYBURIDE [Suspect]
  7. PRILOSEC [Suspect]
  8. LOVASTATIN [Concomitant]
  9. BISOPROLOL FUMARATE AND HYDROCHLOROTHIAZIDE [Concomitant]

REACTIONS (1)
  - DEAFNESS UNILATERAL [None]
